FAERS Safety Report 7771641-9 (Version None)
Quarter: 2011Q3

REPORT INFORMATION
  Report Type: 
  Country: None (occurrence: None)
  Receive Date: 20110922
  Receipt Date: 20100802
  Transmission Date: 20111222
  Serious: Yes (Other)
  Sender: FDA-Public Use
  Company Number: US-ASTRAZENECA-2007UW18525

PATIENT
  Age: 13982 Day
  Sex: Male
  Weight: 108.9 kg

DRUGS (20)
  1. CELEBREX [Concomitant]
     Dates: start: 20060621
  2. METHADONE HCL [Concomitant]
     Indication: BACK PAIN
     Dosage: 5-20 MG
     Route: 048
     Dates: start: 20060216
  3. TRAZODONE HYDROCHLORIDE [Concomitant]
     Dates: start: 20060206
  4. SEROQUEL [Suspect]
     Indication: ANXIETY
     Dosage: 25-50 MG
     Route: 048
     Dates: start: 20060505, end: 20070224
  5. SEROQUEL [Suspect]
     Indication: DEPRESSION
     Dosage: 25-50 MG
     Route: 048
     Dates: start: 20060505, end: 20070224
  6. ACETAMINOPHEN AND HYDROCODONE BITARTRATE [Concomitant]
     Dosage: 10-650 MG
     Dates: start: 20060215
  7. METHADONE HCL [Concomitant]
     Indication: ARTHRALGIA
     Dosage: 5-20 MG
     Route: 048
     Dates: start: 20060216
  8. TOPAMAX [Concomitant]
     Route: 048
     Dates: start: 20060124
  9. NIRAVAM [Concomitant]
     Dates: start: 20060223
  10. BACLOFEN [Concomitant]
     Route: 048
     Dates: start: 20060203
  11. CYMBALTA [Concomitant]
     Route: 048
     Dates: start: 20060302
  12. INDOCIN [Concomitant]
     Indication: PAIN
     Dosage: 25 MG, 1-2 TABLETS Q6H
     Dates: start: 20030903
  13. LUNESTA [Concomitant]
     Dosage: 2-10 MG
     Route: 048
     Dates: start: 20060220
  14. EFFEXOR XR [Concomitant]
     Dosage: 15-300 MG
     Route: 048
     Dates: start: 20060302
  15. EFFEXOR XR [Concomitant]
     Dates: start: 20060606
  16. LANTUS [Concomitant]
     Dosage: 28-UNITS, 100 UNITS/ML
     Dates: start: 20060612
  17. DARVOCET-N 50 [Concomitant]
     Indication: PAIN
     Dosage: 100, Q4H
     Dates: start: 20030903
  18. HUMALOG [Concomitant]
     Dosage: 100 UNITS/ML, 3-15 UNITS ON A SLIDING SCALE
     Dates: start: 20060612
  19. AMBIEN [Concomitant]
     Dosage: 10-12.5 MG
     Dates: start: 20060206
  20. TRIAMTERENE AND HYDROCHLOROTHIAZIDE [Concomitant]
     Dosage: 37.5-25 MG, EVERY DAY
     Dates: start: 20030903

REACTIONS (5)
  - DIABETIC KETOACIDOSIS [None]
  - DIABETES MELLITUS [None]
  - SKIN ULCER [None]
  - TYPE 1 DIABETES MELLITUS [None]
  - DIABETES MELLITUS INADEQUATE CONTROL [None]
